FAERS Safety Report 5029315-3 (Version None)
Quarter: 2006Q2

REPORT INFORMATION
  Report Type: 
  Country: None (occurrence: None)
  Receive Date: 20060616
  Receipt Date: 20060616
  Transmission Date: 20061013
  Serious: Yes (Hospitalization)
  Sender: FDA-Public Use
  Company Number: None

PATIENT
  Sex: Female

DRUGS (1)
  1. SODIUM CHLORIDE 0.9% [Suspect]
     Indication: INTRAVENOUS CATHETER MANAGEMENT
     Dosage: 5 ML THREE TIMES WEEKLY IV
     Route: 042
     Dates: start: 20060615, end: 20060615

REACTIONS (3)
  - NAUSEA [None]
  - PROCEDURAL COMPLICATION [None]
  - VOMITING [None]
